FAERS Safety Report 12486964 (Version 1)
Quarter: 2016Q2

REPORT INFORMATION
  Report Type: Spontaneous
  Country: US (occurrence: None)
  Receive Date: 20160621
  Receipt Date: 20160621
  Transmission Date: 20160815
  Serious: No
  Sender: FDA-Public Use
  Company Number: None

PATIENT
  Age: 36 Year
  Sex: Female
  Weight: 61.24 kg

DRUGS (2)
  1. ZECUITY [Suspect]
     Active Substance: SUMATRIPTAN SUCCINATE
     Indication: MIGRAINE
     Dosage: 1 PATCH (ES) AS NEEDED APPLIED AS MEDICATED PATCH TO SKIN
     Dates: start: 20160618, end: 20160618
  2. ADVIL [Concomitant]
     Active Substance: IBUPROFEN

REACTIONS (4)
  - Product quality issue [None]
  - Skin burning sensation [None]
  - Photosensitivity reaction [None]
  - Erythema [None]

NARRATIVE: CASE EVENT DATE: 20160618
